FAERS Safety Report 4594848-0 (Version None)
Quarter: 2005Q1

REPORT INFORMATION
  Report Type: 
  Country: None (occurrence: None)
  Receive Date: 20050223
  Receipt Date: 20050211
  Transmission Date: 20050727
  Serious: Yes (Death, Other)
  Sender: FDA-Public Use
  Company Number: 2005008181

PATIENT
  Age: 92 Year
  Sex: Male

DRUGS (2)
  1. PHENYTOIN INJECTION (PHENYTOIN SODIUM) [Suspect]
     Indication: CONVULSION
     Dosage: 1 GRAM (1 GRAM , 1 IN 1 D), INTRAVENOUS
     Route: 042
     Dates: end: 20021106
  2. HALLOPERIDOL (HALLOPERIDOL) [Concomitant]

REACTIONS (10)
  - ANTICONVULSANT DRUG LEVEL DECREASED [None]
  - ATROPHY [None]
  - BARREL CHEST [None]
  - CEREBRAL ATROPHY [None]
  - CONVULSION [None]
  - DRUG TOXICITY [None]
  - IATROGENIC INJURY [None]
  - NEPHROSCLEROSIS [None]
  - OVERDOSE [None]
  - SOMNOLENCE [None]
